FAERS Safety Report 8821448 (Version 2)
Quarter: 2012Q4

REPORT INFORMATION
  Report Type: 
  Country: US (occurrence: US)
  Receive Date: 20121002
  Receipt Date: 20121101
  Transmission Date: 20130627
  Serious: Yes (Hospitalization, Other)
  Sender: FDA-Public Use
  Company Number: US-ROCHE-1072448

PATIENT
  Age: 29 Year
  Sex: Male
  Weight: 79.45 kg

DRUGS (2)
  1. ACCUTANE [Suspect]
     Indication: ACNE
     Route: 065
     Dates: start: 19991020, end: 20000221
  2. ACCUTANE [Suspect]
     Route: 065
     Dates: start: 20000424, end: 20000904

REACTIONS (7)
  - Colitis ulcerative [Unknown]
  - Inflammatory bowel disease [Unknown]
  - Anxiety [Unknown]
  - Depression [Unknown]
  - Mental disorder [Unknown]
  - Irritable bowel syndrome [Unknown]
  - Dry skin [Unknown]
